FAERS Safety Report 5591696-X (Version None)
Quarter: 2008Q1

REPORT INFORMATION
  Report Type: 
  Country: None (occurrence: None)
  Receive Date: 20080115
  Receipt Date: 20080104
  Transmission Date: 20080703
  Serious: Yes (Hospitalization, Disabling, Other)
  Sender: FDA-Public Use
  Company Number: US-MERCK-0705USA01334

PATIENT
  Age: 74 Year
  Sex: Female

DRUGS (4)
  1. FOSAMAX [Suspect]
     Indication: OSTEOPOROSIS
     Route: 048
     Dates: start: 20010101, end: 20051201
  2. FOSAMAX [Suspect]
     Indication: OSTEOPENIA
     Route: 048
     Dates: start: 20010101, end: 20051201
  3. DIOVAN [Concomitant]
     Route: 065
     Dates: start: 20020101, end: 20070101
  4. LIPITOR [Concomitant]
     Route: 065
     Dates: start: 20020101, end: 20070101

REACTIONS (14)
  - ANXIETY [None]
  - ATRIAL FLUTTER [None]
  - CHOLELITHIASIS [None]
  - CHRONIC SINUSITIS [None]
  - DEPRESSION [None]
  - DIARRHOEA [None]
  - DRY MOUTH [None]
  - DYSPHONIA [None]
  - GASTROENTERITIS VIRAL [None]
  - OSTEOMYELITIS [None]
  - OSTEONECROSIS [None]
  - PANCREATITIS [None]
  - URINE CALCIUM DECREASED [None]
  - WEIGHT DECREASED [None]
